FAERS Safety Report 5838198-0 (Version None)
Quarter: 2008Q3

REPORT INFORMATION
  Report Type: 
  Country: None (occurrence: None)
  Receive Date: 20080808
  Receipt Date: 20080728
  Transmission Date: 20090109
  Serious: Yes (Hospitalization, Other)
  Sender: FDA-Public Use
  Company Number: US-JNJFOC-20080706694

PATIENT
  Sex: Male

DRUGS (8)
  1. REMICADE [Suspect]
     Dosage: THIRD INFUSION OF INFLIXIMAB
     Route: 042
  2. REMICADE [Suspect]
     Route: 042
  3. REMICADE [Suspect]
     Indication: CROHN'S DISEASE
     Route: 042
  4. VICODIN [Concomitant]
  5. DILAUDID [Concomitant]
  6. XANAX [Concomitant]
  7. BENADRYL [Concomitant]
     Indication: PREMEDICATION
     Route: 042
  8. SOLU-MEDROL [Concomitant]
     Indication: PREMEDICATION
     Route: 042

REACTIONS (3)
  - HYPOTENSION [None]
  - INFUSION RELATED REACTION [None]
  - RESPIRATORY DISTRESS [None]
